FAERS Safety Report 10507802 (Version 1)
Quarter: 2014Q4

REPORT INFORMATION
  Report Type: Spontaneous
  Country: US (occurrence: None)
  Receive Date: 20141008
  Receipt Date: 20141008
  Transmission Date: 20150528
  Serious: No
  Sender: FDA-Public Use
  Company Number: None

PATIENT
  Age: 57 Year
  Sex: Male
  Weight: 77.8 kg

DRUGS (1)
  1. HEPARIN [Suspect]
     Active Substance: HEPARIN SODIUM
     Dosage: 5,000 UNITS
     Route: 058
     Dates: start: 20130920, end: 20130920

REACTIONS (2)
  - Heparin-induced thrombocytopenia test positive [None]
  - Thrombocytopenia [None]

NARRATIVE: CASE EVENT DATE: 20130922
